FAERS Safety Report 6128390-2 (Version None)
Quarter: 2009Q1

REPORT INFORMATION
  Report Type: 
  Country: None (occurrence: None)
  Receive Date: 20090323
  Receipt Date: 20090310
  Transmission Date: 20090719
  Serious: Yes (Hospitalization)
  Sender: FDA-Public Use
  Company Number: FR-ROCHE-621223

PATIENT
  Sex: Male

DRUGS (3)
  1. CELLCEPT [Suspect]
     Route: 048
     Dates: end: 20080530
  2. CORTANCYL [Concomitant]
     Indication: RENAL TRANSPLANT
     Route: 048
  3. NEORAL [Concomitant]
     Route: 048

REACTIONS (2)
  - AGRANULOCYTOSIS [None]
  - LEUKOPENIA [None]
